FAERS Safety Report 15378649 (Version 1)
Quarter: 2018Q3

REPORT INFORMATION
  Report Type: Spontaneous
  Country: US (occurrence: US)
  Receive Date: 20180814
  Receipt Date: 20180814
  Transmission Date: 20181010
  Serious: No
  Sender: FDA-Public Use
  Company Number: None

PATIENT
  Age: 35 Year
  Sex: Female
  Weight: 74.25 kg

DRUGS (2)
  1. MELATONIN 2 [Suspect]
     Active Substance: MELATONIN
     Indication: TANNING
     Route: 030
     Dates: start: 20170301, end: 20170905
  2. MELATONIN 2 [Suspect]
     Active Substance: MELATONIN
     Indication: WEIGHT DECREASED
     Route: 030
     Dates: start: 20170301, end: 20170905

REACTIONS (2)
  - Injection site bruising [None]
  - Psoriasis [None]

NARRATIVE: CASE EVENT DATE: 20170301
